FAERS Safety Report 5143175-1 (Version None)
Quarter: 2006Q4

REPORT INFORMATION
  Report Type: 
  Country: None (occurrence: None)
  Receive Date: 20061103
  Receipt Date: 20061101
  Transmission Date: 20070319
  Serious: Yes (Death)
  Sender: FDA-Public Use
  Company Number: JP-BRISTOL-MYERS SQUIBB COMPANY-13562707

PATIENT
  Age: 71 Year
  Sex: Male

DRUGS (2)
  1. MITOMYCIN [Suspect]
     Route: 042
  2. IRINOTECAN HCL [Concomitant]
     Route: 042

REACTIONS (1)
  - INTERSTITIAL LUNG DISEASE [None]
